FAERS Safety Report 16029399 (Version 1)
Quarter: 2019Q1

REPORT INFORMATION
  Report Type: Spontaneous
  Country: US (occurrence: US)
  Receive Date: 20190304
  Receipt Date: 20190304
  Transmission Date: 20190418
  Serious: No
  Sender: FDA-Public Use
  Company Number: US-IMPAX LABORATORIES, LLC-2018-IPXL-01406

PATIENT
  Sex: Female
  Weight: 54 kg

DRUGS (4)
  1. RYTARY [Suspect]
     Active Substance: CARBIDOPA\LEVODOPA
     Indication: PARKINSON^S DISEASE
     Dosage: 36.25/145 MG, ONE CAPSULE THREE TIMES A DAY
     Route: 065
     Dates: start: 20180328, end: 201803
  2. REMERON [Concomitant]
     Active Substance: MIRTAZAPINE
     Indication: HYPERTENSION
     Dosage: UNK
     Route: 065
  3. RYTARY [Suspect]
     Active Substance: CARBIDOPA\LEVODOPA
     Dosage: 36.25/145 MG, TWO CAPSULE THREE TIMES A DAY
     Route: 048
     Dates: start: 2018
  4. TRAZODONE [Concomitant]
     Active Substance: TRAZODONE HYDROCHLORIDE
     Indication: SLEEP DISORDER
     Dosage: UNK
     Route: 065

REACTIONS (2)
  - Malaise [Unknown]
  - Parkinson^s disease [Recovering/Resolving]
